FAERS Safety Report 12610109 (Version 1)
Quarter: 2016Q3

REPORT INFORMATION
  Report Type: Spontaneous
  Country: US (occurrence: None)
  Receive Date: 20160729
  Receipt Date: 20160729
  Transmission Date: 20161109
  Serious: No
  Sender: FDA-Public Use
  Company Number: None

PATIENT
  Sex: Female

DRUGS (2)
  1. LANTUS [Suspect]
     Active Substance: INSULIN GLARGINE
  2. ALBUTEROL. [Suspect]
     Active Substance: ALBUTEROL

REACTIONS (5)
  - Asthenia [None]
  - Arthralgia [None]
  - Unevaluable event [None]
  - Product tampering [None]
  - Lethargy [None]
